FAERS Safety Report 7789643-5 (Version None)
Quarter: 2011Q3

REPORT INFORMATION
  Report Type: 
  Country: None (occurrence: None)
  Receive Date: 20110930
  Receipt Date: 20110927
  Transmission Date: 20111222
  Serious: Yes (Life-Threatening, Hospitalization, Disabling)
  Sender: FDA-Public Use
  Company Number: US-MERCK-0609USA07426

PATIENT
  Age: 81 Year
  Sex: Female

DRUGS (3)
  1. FOSAMAX [Suspect]
     Indication: OSTEOPOROSIS
     Route: 048
     Dates: start: 19960901, end: 20050901
  2. SYNTHROID [Concomitant]
     Route: 065
  3. DILANTIN [Concomitant]
     Route: 065

REACTIONS (6)
  - LOWER LIMB FRACTURE [None]
  - HIP FRACTURE [None]
  - NAUSEA [None]
  - BREAST CANCER [None]
  - INCREASED UPPER AIRWAY SECRETION [None]
  - FEMUR FRACTURE [None]
